FAERS Safety Report 7275160-8 (Version None)
Quarter: 2011Q1

REPORT INFORMATION
  Report Type: 
  Country: None (occurrence: None)
  Receive Date: 20110204
  Receipt Date: 20110125
  Transmission Date: 20110831
  Serious: Yes (Hospitalization)
  Sender: FDA-Public Use
  Company Number: PHHY2011JP03205

PATIENT
  Sex: Male

DRUGS (6)
  1. SORAFENIB TOSILATE [Concomitant]
     Indication: METASTATIC RENAL CELL CARCINOMA
     Dosage: 800 MG, UNK
     Route: 048
     Dates: start: 20100316, end: 20101118
  2. FLIVAS [Concomitant]
     Dosage: 80 MG, UNK
     Route: 048
     Dates: start: 20090110
  3. URIEF [Concomitant]
     Dosage: 4 MG, UNK
     Route: 048
     Dates: start: 20071206, end: 20090109
  4. AFINITOR [Suspect]
     Indication: METASTATIC RENAL CELL CARCINOMA
     Dosage: 10 MG, QD
     Route: 048
     Dates: start: 20101213, end: 20101221
  5. INTERFERON ALFA [Concomitant]
     Indication: METASTATIC RENAL CELL CARCINOMA
     Dosage: UNK
     Dates: start: 20040628, end: 20041025
  6. TECELEUKIN [Concomitant]
     Indication: METASTATIC RENAL CELL CARCINOMA
     Dosage: UNK
     Dates: start: 20090623, end: 20100216

REACTIONS (2)
  - STOMATITIS [None]
  - INTESTINAL OBSTRUCTION [None]
